FAERS Safety Report 12608939 (Version 7)
Quarter: 2016Q3

REPORT INFORMATION
  Report Type: Spontaneous
  Country: US (occurrence: US)
  Receive Date: 20160731
  Receipt Date: 20160915
  Transmission Date: 20161109
  Serious: Yes (Other)
  Sender: FDA-Public Use
  Company Number: US-ABBVIE-16K-163-1686712-00

PATIENT
  Age: 61 Year
  Sex: Female
  Weight: 88.53 kg

DRUGS (10)
  1. SYNTHROID [Concomitant]
     Active Substance: LEVOTHYROXINE SODIUM
     Indication: HYPOTHYROIDISM
  2. AVAPRO [Concomitant]
     Active Substance: IRBESARTAN
     Indication: HYPERTENSION
  3. MAXZIDE [Concomitant]
     Active Substance: HYDROCHLOROTHIAZIDE\TRIAMTERENE
     Indication: HYPERTENSION
  4. VALIUM [Concomitant]
     Active Substance: DIAZEPAM
     Indication: PRODUCT USED FOR UNKNOWN INDICATION
  5. CARDIZEM [Concomitant]
     Active Substance: DILTIAZEM HYDROCHLORIDE
     Indication: HYPERTENSION
  6. LIPITOR [Concomitant]
     Active Substance: ATORVASTATIN CALCIUM
     Indication: BLOOD CHOLESTEROL INCREASED
  7. HUMIRA [Suspect]
     Active Substance: ADALIMUMAB
     Indication: PSORIASIS
     Route: 058
     Dates: start: 2004, end: 2005
  8. HUMIRA [Suspect]
     Active Substance: ADALIMUMAB
     Indication: PSORIATIC ARTHROPATHY
     Route: 058
     Dates: start: 2005, end: 200908
  9. GLUCOPHAGE [Concomitant]
     Active Substance: METFORMIN HYDROCHLORIDE
     Indication: DIABETES MELLITUS
  10. CENTRUM FOR WOMEN [Concomitant]
     Active Substance: VITAMINS
     Indication: VITAMIN SUPPLEMENTATION

REACTIONS (35)
  - Aplastic anaemia [Not Recovered/Not Resolved]
  - Lung adenocarcinoma [Recovered/Resolved]
  - Intestinal adenocarcinoma [Recovered/Resolved]
  - Device occlusion [Unknown]
  - Squamous cell carcinoma of the vagina [Recovered/Resolved]
  - Precancerous cells present [Not Recovered/Not Resolved]
  - Dizziness [Recovered/Resolved]
  - Radiation proctitis [Not Recovered/Not Resolved]
  - Headache [Unknown]
  - Intestinal polyp [Not Recovered/Not Resolved]
  - Tendon disorder [Unknown]
  - Haemorrhage [Unknown]
  - Arthralgia [Unknown]
  - Chronic fatigue syndrome [Unknown]
  - Psoriasis [Unknown]
  - Tinnitus [Unknown]
  - Visual impairment [Unknown]
  - B-cell lymphoma [Unknown]
  - Adverse drug reaction [Unknown]
  - Exposure to communicable disease [Unknown]
  - Cardiac failure [Unknown]
  - Lung disorder [Unknown]
  - Neuropathy peripheral [Unknown]
  - Radiation injury [Unknown]
  - Pneumonia fungal [Unknown]
  - Anxiety [Unknown]
  - Disability [Not Recovered/Not Resolved]
  - Conjunctivitis [Unknown]
  - Thermal burn [Unknown]
  - Tonsillar hypertrophy [Recovered/Resolved]
  - Precancerous cells present [Recovered/Resolved]
  - Dyspnoea [Recovered/Resolved]
  - Asthenia [Unknown]
  - Dyspnoea [Unknown]
  - Aortic valve stenosis [Unknown]

NARRATIVE: CASE EVENT DATE: 2006
